FAERS Safety Report 8390748-9 (Version None)
Quarter: 2012Q2

REPORT INFORMATION
  Report Type: 
  Country: None (occurrence: None)
  Receive Date: 20120529
  Receipt Date: 20120518
  Transmission Date: 20120825
  Serious: Yes (Hospitalization, Other)
  Sender: FDA-Public Use
  Company Number: JP-VERTEX PHARMACEUTICALS INC.-AE-2012-006322

PATIENT
  Age: 61 Year
  Sex: Male

DRUGS (8)
  1. REBETOL [Concomitant]
     Indication: HEPATITIS C
     Route: 048
     Dates: start: 20120306
  2. PEG-INTRON [Concomitant]
     Indication: HEPATITIS C
     Route: 058
     Dates: start: 20120306, end: 20120313
  3. ATARAX [Concomitant]
     Route: 048
     Dates: start: 20120305
  4. RABEPRAZOLE SODIUM [Concomitant]
     Route: 048
     Dates: start: 20091019
  5. TELAVIC (TELAPREVIR) [Suspect]
     Indication: HEPATITIS C
     Route: 048
     Dates: start: 20120306
  6. ALLEGRA [Concomitant]
     Route: 048
     Dates: start: 20120305
  7. MH OINTMENT [Concomitant]
     Route: 061
     Dates: start: 20120305
  8. PEG-INTRON [Concomitant]
     Route: 058
     Dates: start: 20120320

REACTIONS (2)
  - PNEUMONIA [None]
  - PLATELET COUNT DECREASED [None]
